FAERS Safety Report 6100781-5 (Version None)
Quarter: 2009Q1

REPORT INFORMATION
  Report Type: 
  Country: None (occurrence: None)
  Receive Date: 20090303
  Receipt Date: 20090217
  Transmission Date: 20090719
  Serious: Yes (Death, Hospitalization, Other)
  Sender: FDA-Public Use
  Company Number: ES-ELI_LILLY_AND_COMPANY-ES200902004687

PATIENT
  Age: 67 Year
  Sex: Female

DRUGS (5)
  1. FORTEO [Suspect]
     Indication: OSTEOPOROSIS
     Dosage: 20 UG, UNKNOWN
     Route: 058
     Dates: start: 20081001
  2. CORTISONE [Concomitant]
     Indication: BRONCHIOLITIS
     Dosage: UNK, UNKNOWN
     Route: 065
  3. MORPHINE [Concomitant]
     Indication: PAIN
     Dosage: UNK, UNKNOWN
     Route: 065
  4. ANALGESICS [Concomitant]
     Indication: ANALGESIA
     Dosage: UNK, UNKNOWN
     Route: 065
  5. OXYGEN [Concomitant]
     Indication: BRONCHIOLITIS
     Dosage: UNK, 24 HOURS A DAY
     Route: 065
     Dates: start: 20080101

REACTIONS (3)
  - BRONCHIOLITIS [None]
  - GASTROINTESTINAL DISORDER [None]
  - NERVOUS SYSTEM DISORDER [None]
